FAERS Safety Report 5283946-4 (Version None)
Quarter: 2007Q2

REPORT INFORMATION
  Report Type: 
  Country: None (occurrence: None)
  Receive Date: 20070402
  Receipt Date: 20070321
  Transmission Date: 20071010
  Serious: Yes (Hospitalization, Disabling, Other)
  Sender: FDA-Public Use
  Company Number: ES-PFIZER INC-2006034075

PATIENT
  Age: 62 Year
  Sex: Female

DRUGS (6)
  1. FELDENE [Suspect]
     Indication: ARTHRALGIA
     Route: 048
     Dates: start: 20050619, end: 20050624
  2. FELDENE [Suspect]
     Indication: INFLAMMATION
  3. FELDENE [Suspect]
     Indication: OSTEOARTHRITIS
  4. XICIL [Concomitant]
     Indication: OSTEOARTHRITIS
  5. ACETAMINOPHEN [Concomitant]
  6. OMEPRAZOLE [Concomitant]

REACTIONS (7)
  - BLINDNESS [None]
  - DEAFNESS [None]
  - DIARRHOEA [None]
  - GASTROINTESTINAL DISORDER [None]
  - OESOPHAGEAL DISORDER [None]
  - TOXIC EPIDERMAL NECROLYSIS [None]
  - TRACHEAL ULCER [None]
